FAERS Safety Report 13705006 (Version 1)
Quarter: 2017Q2

REPORT INFORMATION
  Report Type: Spontaneous
  Country: US (occurrence: US)
  Receive Date: 20170630
  Receipt Date: 20170630
  Transmission Date: 20170830
  Serious: No
  Sender: FDA-Public Use
  Company Number: US-IPSEN BIOPHARMACEUTICALS, INC.-2015-4842

PATIENT
  Sex: Female

DRUGS (2)
  1. SOMATULINE DEPOT [Suspect]
     Active Substance: LANREOTIDE ACETATE
     Indication: SOFT TISSUE MASS
     Dosage: NOT REPORTED
     Route: 065
     Dates: start: 2014
  2. SOMATULINE DEPOT [Suspect]
     Active Substance: LANREOTIDE ACETATE
     Indication: PRODUCT USE IN UNAPPROVED INDICATION

REACTIONS (5)
  - Abdominal pain upper [None]
  - Pain [Recovering/Resolving]
  - Dizziness [None]
  - Headache [None]
  - Drug dose omission [Unknown]

NARRATIVE: CASE EVENT DATE: 20150428
